FAERS Safety Report 14484875 (Version 1)
Quarter: 2018Q1

REPORT INFORMATION
  Report Type: Spontaneous
  Country: CA (occurrence: CA)
  Receive Date: 20180205
  Receipt Date: 20180205
  Transmission Date: 20180509
  Serious: Yes (Other)
  Sender: FDA-Public Use
  Company Number: CA-SA-2018SA023002

PATIENT
  Age: 49 Year
  Sex: Male

DRUGS (6)
  1. BCG FOR IMMUNOTHERAPY [Suspect]
     Active Substance: BACILLUS CALMETTE-GUERIN ANTIGEN, UNSPECIFIED SUBSTRAIN
     Indication: BLADDER CANCER
     Route: 043
  2. BCG FOR IMMUNOTHERAPY [Suspect]
     Active Substance: BACILLUS CALMETTE-GUERIN ANTIGEN, UNSPECIFIED SUBSTRAIN
     Indication: BLADDER CANCER
     Route: 043
  3. CISPLATIN. [Concomitant]
     Active Substance: CISPLATIN
  4. METHOTREXATE. [Concomitant]
     Active Substance: METHOTREXATE
  5. DOXORUBICIN [Concomitant]
     Active Substance: DOXORUBICIN
  6. VINBLASTINE [Concomitant]
     Active Substance: VINBLASTINE

REACTIONS (14)
  - Episcleritis [Recovered/Resolved]
  - Urinary tract infection [Recovered/Resolved]
  - Dysuria [Recovered/Resolved]
  - Polyarthritis [Recovered/Resolved]
  - Cystitis [Recovered/Resolved]
  - Inflammation [Recovered/Resolved]
  - Prostatitis [Recovered/Resolved]
  - Pyrexia [Recovered/Resolved]
  - Arthritis [Recovered/Resolved]
  - Haematuria [Recovered/Resolved]
  - Joint swelling [Recovered/Resolved]
  - Urethritis [Recovered/Resolved]
  - Reiter^s syndrome [Recovered/Resolved]
  - Conjunctivitis [Recovered/Resolved]
